FAERS Safety Report 5700807-4 (Version None)
Quarter: 2008Q2

REPORT INFORMATION
  Report Type: 
  Country: None (occurrence: None)
  Receive Date: 20080410
  Receipt Date: 20080331
  Transmission Date: 20081010
  Serious: Yes (Hospitalization, Disabling)
  Sender: FDA-Public Use
  Company Number: CZ-TEVA-169719ISR

PATIENT
  Sex: Female

DRUGS (5)
  1. PACLITAXEL [Suspect]
     Indication: PALLIATIVE CARE
     Route: 042
     Dates: start: 20070220, end: 20071128
  2. IBANDRONIC ACID [Concomitant]
  3. CARDILAN [Concomitant]
  4. NITRENDIPINE [Concomitant]
  5. FUROSEMIDE [Concomitant]

REACTIONS (1)
  - TOXIC NEUROPATHY [None]
